FAERS Safety Report 10252595 (Version 1)
Quarter: 2014Q2

REPORT INFORMATION
  Report Type: Spontaneous
  Country: US (occurrence: None)
  Receive Date: 20140619
  Receipt Date: 20140619
  Transmission Date: 20141212
  Serious: Yes (Other)
  Sender: FDA-Public Use
  Company Number: 2014AP003362

PATIENT
  Age: 15 Year
  Sex: Female

DRUGS (17)
  1. CYCLOSPORINE (CICLOSPORIN) [Suspect]
     Indication: PRODUCT USED FOR UNKNOWN INDICATION
  2. ZINC SULFATE (ZINC SULFATE) [Suspect]
     Indication: ZINC DEFICIENCY
     Route: 048
  3. METHOTREXATE (METHOTREXATE) [Concomitant]
  4. ETANERCEPT (ETANERCEPT) [Concomitant]
  5. ACICLOVIR (ACICLOVIR) [Concomitant]
  6. CETIRIZINE (CETIRIZINE) [Concomitant]
  7. ERGOCALCIFEROL (ERGOCALCIFEROL) [Concomitant]
  8. HYDROCORTISONE (HYDROCORTISONE) [Concomitant]
  9. LANSOPRAZOLE (LANSOPRAZOLE) [Concomitant]
  10. MORPHINE (MORPHINE) [Concomitant]
  11. ONDANSETRON (ONDANSETRON) [Concomitant]
  12. POTASSIUM CHLORIDE (POTASSIUM CHLORIDE) [Concomitant]
  13. SERTRALINE (SERTRALINE) [Concomitant]
  14. COTRIMOXAZOLE (SULFAMETHOXAZOLE, TRIMETHOPRIM) [Concomitant]
  15. PENTAMIDINE (PENTAMIDINE) [Concomitant]
  16. ZOLPIDEM (ZOLPIDEM) [Concomitant]
  17. MYCOPHENOLATE MOFETIL (MYCOPHENOLATE MOFETIL) [Concomitant]

REACTIONS (5)
  - Myelodysplastic syndrome [None]
  - Pancytopenia [None]
  - Copper deficiency [None]
  - Toxicity to various agents [None]
  - Microangiopathic haemolytic anaemia [None]
